FAERS Safety Report 9364807 (Version 3)
Quarter: 2013Q4

REPORT INFORMATION
  Report Type: Spontaneous
  Country: US (occurrence: US)
  Receive Date: 20130624
  Receipt Date: 20131115
  Transmission Date: 20140711
  Serious: Yes (Other)
  Sender: FDA-Public Use
  Company Number: US-ELI_LILLY_AND_COMPANY-US201306003706

PATIENT
  Sex: Male
  Weight: 101.13 kg

DRUGS (4)
  1. HUMALOG LISPRO [Suspect]
     Indication: TYPE 1 DIABETES MELLITUS
     Dosage: 28 U, EACH MORNING
     Route: 058
     Dates: start: 201305
  2. HUMALOG LISPRO [Suspect]
     Dosage: 20 U, EACH EVENING
     Route: 058
     Dates: start: 201305
  3. LANTUS [Concomitant]
  4. LEVEMIR [Concomitant]

REACTIONS (5)
  - Shock hypoglycaemic [Recovered/Resolved]
  - Hypoglycaemic seizure [Unknown]
  - Basedow^s disease [Unknown]
  - Blood glucose fluctuation [Unknown]
  - Blood glucose decreased [Recovered/Resolved]
